FAERS Safety Report 6256248-7 (Version None)
Quarter: 2009Q3

REPORT INFORMATION
  Report Type: 
  Country: None (occurrence: None)
  Receive Date: 20090706
  Receipt Date: 20090511
  Transmission Date: 20100115
  Serious: No
  Sender: FDA-Public Use
  Company Number: A0783536A

PATIENT
  Age: 51 Year
  Sex: Female

DRUGS (7)
  1. ADVAIR HFA [Suspect]
     Dosage: 2PUFF TWICE PER DAY
     Route: 055
     Dates: start: 20090423
  2. ALBUTEROL [Concomitant]
  3. ALLEGRA D 24 HOUR [Concomitant]
  4. OMEPRAZOLE [Concomitant]
  5. NASACORT [Concomitant]
  6. ASTELIN [Concomitant]
  7. DIFLUCAN [Concomitant]

REACTIONS (1)
  - SENSITIVITY OF TEETH [None]
